FAERS Safety Report 16919096 (Version 1)
Quarter: 2019Q4

REPORT INFORMATION
  Report Type: Spontaneous
  Country: GB (occurrence: GB)
  Receive Date: 20191015
  Receipt Date: 20191015
  Transmission Date: 20200122
  Serious: Yes (Other)
  Sender: FDA-Public Use
  Company Number: GB-MYLANLABS-2019M1095650

PATIENT
  Age: 37 Year
  Sex: Female
  Weight: 64 kg

DRUGS (6)
  1. ADAPALENE. [Concomitant]
     Active Substance: ADAPALENE
     Dosage: 1 DOSAGE FORM, QD (APPLY TO THE AFFECTED AREA(S))
     Dates: start: 20190523, end: 20190705
  2. SERTRALINE [Suspect]
     Active Substance: SERTRALINE HYDROCHLORIDE
     Indication: PRODUCT USED FOR UNKNOWN INDICATION
     Dosage: 50 MILLIGRAM, QD
     Dates: start: 20190523
  3. DUAC [Concomitant]
     Active Substance: BENZOYL PEROXIDE\CLINDAMYCIN PHOSPHATE
     Dosage: 1 DOSAGE FORM, PM (APPLY AT NIGHT)
     Dates: start: 20190705
  4. TERBINAFINE. [Concomitant]
     Active Substance: TERBINAFINE
     Dosage: 1 DOSAGE FORM, QD (FOR TWELVE WEEKS)
     Dates: start: 20190705
  5. CITALOPRAM [Suspect]
     Active Substance: CITALOPRAM HYDROBROMIDE
     Indication: PRODUCT USED FOR UNKNOWN INDICATION
     Dosage: UNK
     Dates: start: 20181218, end: 20190530
  6. VENLAFAXINE [Concomitant]
     Active Substance: VENLAFAXINE HYDROCHLORIDE
     Dosage: 2 DOSAGE FORM, CYCLE
     Dates: start: 20190705

REACTIONS (1)
  - Acne [Unknown]

NARRATIVE: CASE EVENT DATE: 20181231
